FAERS Safety Report 8923309 (Version 2)
Quarter: 2013Q1

REPORT INFORMATION
  Report Type: Spontaneous
  Country: BR (occurrence: BR)
  Receive Date: 20121123
  Receipt Date: 20130320
  Transmission Date: 20140127
  Serious: Yes (Disabling, Other)
  Sender: FDA-Public Use
  Company Number: BR-ABBOTT-12P-020-1008737-00

PATIENT
  Sex: Male
  Weight: 90 kg

DRUGS (14)
  1. CREON [Suspect]
     Indication: DIARRHOEA
     Route: 048
     Dates: start: 200907, end: 200908
  2. CREON [Suspect]
     Indication: DIARRHOEA
     Dates: end: 2010
  3. CREON [Suspect]
     Dates: start: 2012
  4. CREON [Suspect]
     Route: 048
     Dates: start: 201209
  5. CREON [Suspect]
     Route: 048
  6. FLORATIL [Concomitant]
     Indication: DISBACTERIOSIS
     Route: 048
     Dates: start: 201112
  7. RACECADOTRIL [Concomitant]
     Indication: PROPHYLAXIS AGAINST DIARRHOEA
     Route: 048
     Dates: start: 20121112
  8. LANTUS [Concomitant]
     Indication: DIABETES MELLITUS
     Dosage: IN THE MORNING
     Route: 058
     Dates: start: 1999
  9. PASSIFLORIN [Concomitant]
     Indication: ANXIOLYTIC THERAPY
     Dosage: (PASSIFLORINE)
     Route: 048
     Dates: start: 2012
  10. PASSIFLORIN [Concomitant]
     Indication: ANXIOLYTIC THERAPY
  11. MOTILIUM [Concomitant]
     Indication: GASTROOESOPHAGEAL REFLUX DISEASE
     Dosage: PRIOR TO LUNCH AND PRIOR TO DINNER
     Route: 048
     Dates: start: 2011
  12. GALVUS [Concomitant]
     Indication: DIABETES MELLITUS
     Dosage: PRIOR TO LUNCH, PRIOR TO DINNER
     Route: 048
     Dates: start: 2012
  13. ZYLORIC [Concomitant]
     Indication: GOUT
     Route: 048
     Dates: start: 2011
  14. SIMVASTATIN [Concomitant]
     Indication: CEREBROVASCULAR ACCIDENT
     Route: 048
     Dates: start: 2011

REACTIONS (7)
  - Cerebrovascular accident [Recovered/Resolved]
  - Bedridden [Unknown]
  - Cerebrovascular accident [Unknown]
  - Constipation [Unknown]
  - Depression [Recovered/Resolved]
  - Drug ineffective [Unknown]
  - Gastrointestinal hypomotility [Unknown]
